FAERS Safety Report 11468258 (Version 1)
Quarter: 2015Q3

REPORT INFORMATION
  Report Type: Spontaneous
  Country: GB (occurrence: GB)
  Receive Date: 20150908
  Receipt Date: 20150908
  Transmission Date: 20151125
  Serious: Yes (Death, Hospitalization)
  Sender: FDA-Public Use
  Company Number: GB-TEVA-590070ACC

PATIENT
  Age: 36 Year
  Sex: Male

DRUGS (3)
  1. HEROIN [Interacting]
     Active Substance: DIACETYLMORPHINE
     Dosage: USED FOR SEVERAL YEARS
  2. CITALOPRAM [Suspect]
     Active Substance: CITALOPRAM HYDROBROMIDE
     Dosage: PRESCRIBED A FEW DAYS BEFORE COLLAPSE
     Dates: start: 201502
  3. COCAINE [Interacting]
     Active Substance: COCAINE
     Dosage: USED FOR SEVERAL YEARS

REACTIONS (3)
  - Subarachnoid haemorrhage [Fatal]
  - Circulatory collapse [Not Recovered/Not Resolved]
  - Drug interaction [Unknown]

NARRATIVE: CASE EVENT DATE: 20150217
